FAERS Safety Report 5061935-2 (Version None)
Quarter: 2006Q3

REPORT INFORMATION
  Report Type: 
  Country: None (occurrence: None)
  Receive Date: 20060721
  Receipt Date: 20060714
  Transmission Date: 20061208
  Serious: Yes (Other)
  Sender: FDA-Public Use
  Company Number: 2006087677

PATIENT
  Sex: Female

DRUGS (2)
  1. UNISOM [Suspect]
     Dosage: 8 SLEEP TABS ONCE, ORAL
     Route: 048
     Dates: start: 20060713, end: 20060713
  2. ETHANOL (ETHANOL) [Suspect]

REACTIONS (3)
  - ALCOHOL USE [None]
  - INCORRECT DOSE ADMINISTERED [None]
  - SOMNOLENCE [None]
